FAERS Safety Report 21302235 (Version 2)
Quarter: 2022Q3

REPORT INFORMATION
  Report Type: Report from Study
  Country: US (occurrence: US)
  Receive Date: 20220907
  Receipt Date: 20220926
  Transmission Date: 20221027
  Serious: Yes (Other)
  Sender: FDA-Public Use
  Company Number: US-JAZZ-2022-US-028747

PATIENT
  Sex: Female

DRUGS (1)
  1. XYWAV [Suspect]
     Active Substance: CALCIUM OXYBATE\MAGNESIUM OXYBATE\POTASSIUM OXYBATE\SODIUM OXYBATE
     Indication: Hypersomnia
     Dosage: 3.75 GRAM

REACTIONS (8)
  - Dystonia [Unknown]
  - Disorientation [Not Recovered/Not Resolved]
  - Condition aggravated [Not Recovered/Not Resolved]
  - Euphoric mood [Unknown]
  - Hyperhidrosis [Unknown]
  - Dizziness [Not Recovered/Not Resolved]
  - Amnesia [Unknown]
  - Somnambulism [Unknown]
